FAERS Safety Report 4889133-3 (Version None)
Quarter: 2005Q4

REPORT INFORMATION
  Report Type: 
  Country: None (occurrence: None)
  Receive Date: 20051215
  Receipt Date: 20051012
  Transmission Date: 20060501
  Serious: Yes (Hospitalization, Other)
  Sender: FDA-Public Use
  Company Number: 2005141822

PATIENT
  Age: 70 Year
  Sex: Female

DRUGS (8)
  1. BEXTRA [Suspect]
     Indication: ARTHRITIS
     Dosage: (10 MG)
     Dates: start: 20031014, end: 20041119
  2. VIOXX [Suspect]
     Indication: ARTHRITIS
     Dosage: (25 MG)
     Dates: start: 20020923
  3. PREMARIN [Concomitant]
  4. ESTRACE [Concomitant]
  5. NEXIUM [Concomitant]
  6. LIPITOR [Concomitant]
  7. ASPIRIN [Concomitant]
  8. LODINE [Concomitant]

REACTIONS (7)
  - ANAEMIA [None]
  - ASTHENIA [None]
  - ATRIAL FIBRILLATION [None]
  - HYPERTHYROIDISM [None]
  - INSOMNIA [None]
  - STRESS INCONTINENCE [None]
  - TENDON DISORDER [None]
